FAERS Safety Report 13314163 (Version 1)
Quarter: 2017Q1

REPORT INFORMATION
  Report Type: Spontaneous
  Country: FR (occurrence: FR)
  Receive Date: 20170309
  Receipt Date: 20170309
  Transmission Date: 20170428
  Serious: Yes (Death)
  Sender: FDA-Public Use
  Company Number: FR-BAYER-2017-040326

PATIENT
  Age: 95 Year
  Sex: Female

DRUGS (1)
  1. ASPIRINE PROTECT 100 MG [Suspect]
     Active Substance: ASPIRIN
     Dosage: 1 DF, QD
     Route: 048

REACTIONS (3)
  - Tachypnoea [Fatal]
  - Mucosal discolouration [Fatal]
  - Anaemia [Fatal]

NARRATIVE: CASE EVENT DATE: 20160709
